FAERS Safety Report 24980639 (Version 1)
Quarter: 2025Q1

REPORT INFORMATION
  Report Type: Spontaneous
  Country: US (occurrence: None)
  Receive Date: 20250214
  Receipt Date: 20250214
  Transmission Date: 20250409
  Serious: Yes (Hospitalization)
  Sender: FDA-CTU
  Company Number: None

PATIENT
  Age: 77 Year
  Sex: Female

DRUGS (2)
  1. GAMMAGARD LIQUID [Suspect]
     Active Substance: HUMAN IMMUNOGLOBULIN G
     Indication: Myasthenia gravis
     Dosage: FREQUENCY : WEEKLY;?STRENGTH: 30GM/300M
     Route: 042
     Dates: start: 202303
  2. GAMMAGARD LIQUID [Suspect]
     Active Substance: HUMAN IMMUNOGLOBULIN G
     Indication: Myasthenia gravis
     Dosage: FREQUENCY : WEEKLY; ?STRENGTH: 5GM/50ML ?
     Route: 042
     Dates: start: 202303

REACTIONS (4)
  - Cerebrovascular accident [None]
  - Fall [None]
  - Full blood count decreased [None]
  - Internal haemorrhage [None]

NARRATIVE: CASE EVENT DATE: 20250129
